FAERS Safety Report 4791339-9 (Version None)
Quarter: 2005Q4

REPORT INFORMATION
  Report Type: 
  Country: None (occurrence: None)
  Receive Date: 20051007
  Receipt Date: 20050928
  Transmission Date: 20060501
  Serious: Yes (Hospitalization)
  Sender: FDA-Public Use
  Company Number: CA-JNJFOC-20050805149

PATIENT
  Sex: Male
  Weight: 53.52 kg

DRUGS (4)
  1. REMICADE [Suspect]
     Route: 042
  2. REMICADE [Suspect]
     Indication: CROHN'S DISEASE
     Route: 042
  3. BENADRYL [Concomitant]
     Indication: PREMEDICATION
     Route: 048
  4. PREDNISONE [Concomitant]
     Indication: PREMEDICATION
     Route: 048

REACTIONS (5)
  - FLUSHING [None]
  - INFUSION RELATED REACTION [None]
  - OBSTRUCTION [None]
  - PRURITUS [None]
  - THROAT TIGHTNESS [None]
